FAERS Safety Report 4315415-X (Version None)
Quarter: 2004Q1

REPORT INFORMATION
  Report Type: 
  Country: None (occurrence: None)
  Receive Date: 20040309
  Receipt Date: 20040223
  Transmission Date: 20041129
  Serious: Yes (Hospitalization)
  Sender: FDA-Public Use
  Company Number: 192994

PATIENT
  Age: 63 Year
  Sex: Male
  Weight: 53.978 kg

DRUGS (4)
  1. AVONEX [Suspect]
     Indication: MULTIPLE SCLEROSIS
     Dosage: 30 MCG QW IM
     Route: 030
     Dates: start: 20010101, end: 20030801
  2. AVONEX [Suspect]
     Indication: MULTIPLE SCLEROSIS
     Dosage: 30 MCG QW IM
     Route: 031
     Dates: start: 20030801, end: 20031201
  3. ZANTAC [Concomitant]
  4. BACLOFEN [Concomitant]

REACTIONS (3)
  - INFLUENZA LIKE ILLNESS [None]
  - URINARY RETENTION [None]
  - URINARY TRACT OBSTRUCTION [None]
